FAERS Safety Report 21728514 (Version 1)
Quarter: 2022Q4

REPORT INFORMATION
  Report Type: Report from Study
  Country: CL (occurrence: CL)
  Receive Date: 20221214
  Receipt Date: 20221214
  Transmission Date: 20230113
  Serious: Yes (Hospitalization, Other)
  Sender: FDA-Public Use
  Company Number: CL-JNJFOC-20221212539

PATIENT
  Age: 8 Decade
  Sex: Female

DRUGS (1)
  1. SIMPONI [Suspect]
     Active Substance: GOLIMUMAB
     Indication: Rheumatoid arthritis
     Route: 058
     Dates: start: 20210902

REACTIONS (12)
  - Tuberculosis [Unknown]
  - Foot fracture [Unknown]
  - Oropharyngeal pain [Unknown]
  - Eye infection [Unknown]
  - Ear infection [Unknown]
  - Nasopharyngitis [Unknown]
  - Nasal congestion [Unknown]
  - Feeling abnormal [Unknown]
  - Depression [Unknown]
  - Inflammation [Unknown]
  - Sleep disorder [Unknown]
  - Arthralgia [Unknown]
